FAERS Safety Report 5878184-8 (Version None)
Quarter: 2008Q3

REPORT INFORMATION
  Report Type: 
  Country: None (occurrence: None)
  Receive Date: 20080911
  Receipt Date: 20080903
  Transmission Date: 20090109
  Serious: Yes (Hospitalization, Other)
  Sender: FDA-Public Use
  Company Number: PHHY2008NZ16914

PATIENT
  Sex: Male

DRUGS (4)
  1. CLOZARIL [Suspect]
     Indication: SCHIZOPHRENIA
     Dosage: UNK
     Dates: start: 20080718
  2. CLOZARIL [Suspect]
     Dosage: 300 MG/ DAY
     Dates: start: 20080731, end: 20080806
  3. VALPROATE SODIUM [Concomitant]
     Indication: CONVULSION
     Dosage: 1000 MG, BID
     Route: 048
     Dates: start: 20080328
  4. HALOPERIDOL [Concomitant]
     Dosage: 5 MG, QHS

REACTIONS (13)
  - AGITATION [None]
  - BRAIN HYPOXIA [None]
  - CONFUSIONAL STATE [None]
  - DIARRHOEA [None]
  - DYSPNOEA [None]
  - FLUID OVERLOAD [None]
  - MECHANICAL VENTILATION [None]
  - MEMORY IMPAIRMENT [None]
  - PNEUMONIA ASPIRATION [None]
  - PNEUMONITIS [None]
  - PSYCHOTIC BEHAVIOUR [None]
  - PYREXIA [None]
  - RESPIRATORY DISTRESS [None]
